FAERS Safety Report 23241446 (Version 1)
Quarter: 2023Q4

REPORT INFORMATION
  Report Type: Spontaneous
  Country: US (occurrence: US)
  Receive Date: 20231129
  Receipt Date: 20231129
  Transmission Date: 20240109
  Serious: Yes (Hospitalization)
  Sender: FDA-Public Use
  Company Number: US-MYLANLABS-2023M1124148

PATIENT
  Age: 75 Year
  Sex: Male

DRUGS (1)
  1. AMIODARONE [Suspect]
     Active Substance: AMIODARONE
     Indication: Atrial fibrillation
     Dosage: UNK
     Route: 065

REACTIONS (5)
  - Hypothyroidism [Recovering/Resolving]
  - Cardiac failure [Recovering/Resolving]
  - Hyponatraemia [Recovering/Resolving]
  - Cardiomegaly [Recovering/Resolving]
  - Off label use [Unknown]
